FAERS Safety Report 18688730 (Version 1)
Quarter: 2020Q4

REPORT INFORMATION
  Report Type: Spontaneous
  Country: US (occurrence: US)
  Receive Date: 20201231
  Receipt Date: 20201231
  Transmission Date: 20210114
  Serious: No
  Sender: FDA-Public Use
  Company Number: US-SA-2020SA373800

PATIENT

DRUGS (1)
  1. DUPIXENT [Suspect]
     Active Substance: DUPILUMAB
     Indication: SINUSITIS
     Dosage: UNK

REACTIONS (5)
  - Rhinorrhoea [Unknown]
  - Sneezing [Unknown]
  - Product use in unapproved indication [Unknown]
  - Paranasal sinus hyposecretion [Unknown]
  - Paranasal sinus discomfort [Unknown]

NARRATIVE: CASE EVENT DATE: 20200818
